FAERS Safety Report 8226828-8 (Version None)
Quarter: 2012Q1

REPORT INFORMATION
  Report Type: 
  Country: None (occurrence: None)
  Receive Date: 20120322
  Receipt Date: 20120312
  Transmission Date: 20120608
  Serious: Yes (Hospitalization)
  Sender: FDA-Public Use
  Company Number: US-BAYER-2011-076132

PATIENT
  Age: 28 Year
  Sex: Female
  Weight: 52.608 kg

DRUGS (7)
  1. YAZ [Suspect]
     Dosage: UNK
     Dates: start: 20090409, end: 20091101
  2. YAZ [Suspect]
     Dosage: UNK
     Dates: start: 20100101
  3. NSAID'S [Concomitant]
     Dosage: UNK UNK, PRN
  4. DROSPIRENONE AND ETHINYL ESTRADIOL [Suspect]
     Indication: CONTRACEPTION
     Dosage: UNK
  5. SPIRONOLACTONE [Concomitant]
     Dosage: UNK
     Dates: start: 20080323
  6. YAZ [Suspect]
     Indication: CONTRACEPTION
     Dosage: UNK
     Dates: start: 20061120, end: 20081101
  7. TOPAMAX [Concomitant]
     Dosage: UNK
     Route: 048
     Dates: start: 20090917

REACTIONS (7)
  - PAIN [None]
  - GALLBLADDER DISORDER [None]
  - ABDOMINAL PAIN [None]
  - BILIARY DYSKINESIA [None]
  - ANXIETY [None]
  - ANHEDONIA [None]
  - CHOLECYSTITIS CHRONIC [None]
